FAERS Safety Report 7420442-X (Version None)
Quarter: 2011Q2

REPORT INFORMATION
  Report Type: 
  Country: None (occurrence: None)
  Receive Date: 20110418
  Receipt Date: 20110412
  Transmission Date: 20111010
  Serious: No
  Sender: FDA-Public Use
  Company Number: US-PFIZER INC-2011080675

PATIENT
  Sex: Female

DRUGS (3)
  1. LYRICA [Suspect]
     Dosage: UNK
  2. FLUOXETINE [Suspect]
     Dosage: UNK
  3. CLONAZEPAM [Suspect]
     Dosage: UNK

REACTIONS (1)
  - FEELING ABNORMAL [None]
